FAERS Safety Report 4931476-9 (Version None)
Quarter: 2006Q1

REPORT INFORMATION
  Report Type: 
  Country: None (occurrence: None)
  Receive Date: 20060303
  Receipt Date: 20060224
  Transmission Date: 20060701
  Serious: Yes (Hospitalization)
  Sender: FDA-Public Use
  Company Number: US-KINGPHARMUSA00001-K200600270

PATIENT
  Age: 28 Year
  Sex: Female

DRUGS (1)
  1. ALTACE [Suspect]
     Indication: HYPERTENSION
     Route: 048

REACTIONS (4)
  - ACUTE FEBRILE NEUTROPHILIC DERMATOSIS [None]
  - LYMPHADENOPATHY [None]
  - RASH PUSTULAR [None]
  - SKIN SWELLING [None]
